FAERS Safety Report 13516388 (Version 1)
Quarter: 2017Q2

REPORT INFORMATION
  Report Type: Spontaneous
  Country: US (occurrence: US)
  Receive Date: 20170505
  Receipt Date: 20170505
  Transmission Date: 20170830
  Serious: Yes (Hospitalization)
  Sender: FDA-Public Use
  Company Number: US-CIPLA LTD.-2017US08272

PATIENT

DRUGS (1)
  1. VALACYCLOVIR [Suspect]
     Active Substance: VALACYCLOVIR HYDROCHLORIDE
     Indication: CENTRAL NERVOUS SYSTEM VIRAL INFECTION
     Dosage: UNK
     Route: 048

REACTIONS (2)
  - Staphylococcal sepsis [Unknown]
  - Enterococcal infection [Unknown]
